FAERS Safety Report 5131630-X (Version None)
Quarter: 2006Q4

REPORT INFORMATION
  Report Type: 
  Country: None (occurrence: None)
  Receive Date: 20061020
  Receipt Date: 20061009
  Transmission Date: 20070319
  Serious: Yes (Other)
  Sender: FDA-Public Use
  Company Number: 2006GB01810

PATIENT
  Age: 42 Year
  Sex: Female

DRUGS (1)
  1. DIPRIVAN [Suspect]
     Route: 042

REACTIONS (2)
  - HAEMOLYTIC ANAEMIA [None]
  - LUNG DISORDER [None]
